FAERS Safety Report 6393427-2 (Version None)
Quarter: 2009Q4

REPORT INFORMATION
  Report Type: 
  Country: None (occurrence: None)
  Receive Date: 20091008
  Receipt Date: 20090930
  Transmission Date: 20100525
  Serious: Yes (Other)
  Sender: FDA-Public Use
  Company Number: US-BAYER-200914841BCC

PATIENT
  Sex: Female
  Weight: 65 kg

DRUGS (7)
  1. NEO-SYNEPHRINE REGULAR STRENGTH DROPS [Suspect]
     Indication: NASAL CONGESTION
     Dosage: CONSUMER REPORTED THAT SHE USED THE PRODUCT MULTIPLE TIMES PER DAY
     Route: 045
     Dates: start: 19500101, end: 19790101
  2. VERAPAMIL [Concomitant]
     Route: 065
  3. LISINOPRIL [Concomitant]
     Route: 065
  4. RANITIDINE [Concomitant]
     Route: 065
  5. LOVASTATIN [Concomitant]
     Route: 065
  6. CALCIUM [Concomitant]
     Route: 065
  7. ASPIRIN [Concomitant]
     Route: 065

REACTIONS (1)
  - DRUG DEPENDENCE [None]
